FAERS Safety Report 18260208 (Version 2)
Quarter: 2020Q3

REPORT INFORMATION
  Report Type: Report from Study
  Country: CA (occurrence: CA)
  Receive Date: 20200913
  Receipt Date: 20200921
  Transmission Date: 20201103
  Serious: Yes (Death)
  Sender: FDA-Public Use
  Company Number: CA-BEH-2020122369

PATIENT
  Age: 63 Year
  Sex: Female

DRUGS (1)
  1. HIZENTRA [Suspect]
     Active Substance: HUMAN IMMUNOGLOBULIN G
     Indication: PRIMARY IMMUNODEFICIENCY SYNDROME
     Dosage: 11 GRAM, QW
     Route: 058
     Dates: start: 20160901

REACTIONS (3)
  - Peripheral ischaemia [Fatal]
  - Peripheral artery thrombosis [Fatal]
  - Vascular graft thrombosis [Fatal]
